FAERS Safety Report 21732087 (Version 1)
Quarter: 2022Q4

REPORT INFORMATION
  Report Type: Report from Study
  Country: AU (occurrence: AU)
  Receive Date: 20221215
  Receipt Date: 20221215
  Transmission Date: 20230112
  Serious: Yes (Other)
  Sender: FDA-Public Use
  Company Number: AU-002147023-NVSC2022AU167392

PATIENT
  Age: 70 Year
  Sex: Female

DRUGS (1)
  1. MAYZENT [Suspect]
     Active Substance: SIPONIMOD
     Indication: Secondary progressive multiple sclerosis
     Dosage: 1 MG, QD
     Route: 048
     Dates: start: 20220714

REACTIONS (11)
  - Suicidal ideation [Unknown]
  - Feeling abnormal [Not Recovered/Not Resolved]
  - COVID-19 [Unknown]
  - Nocturia [Unknown]
  - Visual impairment [Unknown]
  - Musculoskeletal disorder [Unknown]
  - Hypoacusis [Unknown]
  - Gait disturbance [Recovering/Resolving]
  - Aphonia [Unknown]
  - Peripheral swelling [Unknown]
  - Pain in extremity [Unknown]

NARRATIVE: CASE EVENT DATE: 20220720
